FAERS Safety Report 9239527 (Version 1)
Quarter: 2013Q2

REPORT INFORMATION
  Report Type: Spontaneous
  Country: US (occurrence: US)
  Receive Date: 20130418
  Receipt Date: 20130418
  Transmission Date: 20140414
  Serious: No
  Sender: FDA-Public Use
  Company Number: US-TEVA-395834USA

PATIENT
  Sex: Female
  Weight: 56.3 kg

DRUGS (5)
  1. AZILECT [Suspect]
     Indication: PARKINSON^S DISEASE
     Dosage: 3 MILLIGRAM DAILY;
     Dates: end: 2013
  2. REQUIP [Concomitant]
     Indication: PARKINSON^S DISEASE
     Dosage: 4 TABLET DAILY;
     Route: 048
  3. SINEMET [Concomitant]
     Indication: PARKINSON^S DISEASE
     Dosage: 4 TABLET DAILY;
     Route: 048
  4. TYLENOL #3 [Concomitant]
     Indication: PAIN
  5. MUSCLE RELAXANT [Concomitant]

REACTIONS (3)
  - Fatigue [Not Recovered/Not Resolved]
  - Pain [Not Recovered/Not Resolved]
  - Fall [Not Recovered/Not Resolved]
